FAERS Safety Report 19934938 (Version 1)
Quarter: 2021Q4

REPORT INFORMATION
  Report Type: Report from Study
  Country: NL (occurrence: NL)
  Receive Date: 20211008
  Receipt Date: 20211008
  Transmission Date: 20220304
  Serious: Yes (Death)
  Sender: FDA-Public Use
  Company Number: NL-ABBVIE-21K-114-3894461-00

PATIENT
  Sex: Male

DRUGS (7)
  1. AZACITIDINE [Suspect]
     Active Substance: AZACITIDINE
     Indication: Acute myeloid leukaemia
     Dosage: 75 MILLIGRAM/SQ. METER, QD (DAYS 1 TO 7)
     Route: 042
     Dates: start: 20210308, end: 20210314
  2. AZACITIDINE [Suspect]
     Active Substance: AZACITIDINE
     Dosage: 75 MILLIGRAM/SQ. METER, QD
     Route: 042
     Dates: start: 20210403, end: 20210407
  3. VENETOCLAX [Suspect]
     Active Substance: VENETOCLAX
     Indication: Acute myeloid leukaemia
     Dosage: 30 MILLIGRAM, QD
     Route: 048
     Dates: start: 20210308, end: 20210308
  4. VENETOCLAX [Suspect]
     Active Substance: VENETOCLAX
     Dosage: 60 MILLIGRAM, QD
     Route: 048
     Dates: start: 20210309, end: 20210309
  5. VENETOCLAX [Suspect]
     Active Substance: VENETOCLAX
     Dosage: 150 MILLIGRAM, QD
     Route: 048
     Dates: start: 20210310, end: 20210408
  6. CYTARABINE [Concomitant]
     Active Substance: CYTARABINE
     Indication: Acute myeloid leukaemia
     Dosage: UNK
     Dates: start: 201707, end: 202005
  7. CYTARABINE [Concomitant]
     Active Substance: CYTARABINE
     Dosage: LOW DOSE
     Dates: start: 20210226

REACTIONS (3)
  - Acute myeloid leukaemia [Fatal]
  - Respiratory disorder [Unknown]
  - Off label use [Unknown]

NARRATIVE: CASE EVENT DATE: 20210408
